FAERS Safety Report 10304732 (Version 1)
Quarter: 2014Q3

REPORT INFORMATION
  Report Type: Spontaneous
  Country: US (occurrence: None)
  Receive Date: 20140710
  Receipt Date: 20140710
  Transmission Date: 20150326
  Serious: Yes (Disabling)
  Sender: FDA-Public Use
  Company Number: None

PATIENT
  Age: 43 Year
  Sex: Female
  Weight: 62.14 kg

DRUGS (1)
  1. MIRENA [Suspect]
     Active Substance: LEVONORGESTREL
     Dates: start: 20120113, end: 20131216

REACTIONS (6)
  - Rheumatoid arthritis [None]
  - Pain [None]
  - No therapeutic response [None]
  - Swelling [None]
  - Heart rate abnormal [None]
  - Headache [None]

NARRATIVE: CASE EVENT DATE: 20140108
